FAERS Safety Report 14623779 (Version 1)
Quarter: 2018Q1

REPORT INFORMATION
  Report Type: Spontaneous
  Country: US (occurrence: US)
  Receive Date: 20180309
  Receipt Date: 20180309
  Transmission Date: 20180509
  Serious: Yes (Hospitalization)
  Sender: FDA-Public Use
  Company Number: None

PATIENT
  Age: 67 Year
  Sex: Male

DRUGS (8)
  1. MYCOPHENOLATE 500MG [Suspect]
     Active Substance: MYCOPHENOLIC ACID
     Indication: TRANSPLANT
     Dosage: FREQUENCY - 1 CAPSULE Q 12 HOURS
     Route: 048
     Dates: start: 20171023
  2. PREDNISONE. [Concomitant]
     Active Substance: PREDNISONE
  3. LEVEMIR [Concomitant]
     Active Substance: INSULIN DETEMIR
  4. OMEPRAZOLE. [Concomitant]
     Active Substance: OMEPRAZOLE
  5. MYCOPHENOLATE 250MG [Suspect]
     Active Substance: MYCOPHENOLIC ACID
     Indication: TRANSPLANT
     Dosage: FREQUENCY - 1 CAPSULE Q 12 HOURS
     Route: 048
     Dates: start: 20180116
  6. TACROLIMUS. [Concomitant]
     Active Substance: TACROLIMUS
  7. NIFEDIPINE. [Concomitant]
     Active Substance: NIFEDIPINE
  8. NOVOLOG [Concomitant]
     Active Substance: INSULIN ASPART

REACTIONS (1)
  - Hospitalisation [None]
